FAERS Safety Report 4308225-0 (Version None)
Quarter: 2004Q1

REPORT INFORMATION
  Report Type: 
  Country: None (occurrence: None)
  Receive Date: 20040301
  Receipt Date: 20030904
  Transmission Date: 20041129
  Serious: No
  Sender: FDA-Public Use
  Company Number: US-BRISTOL-MYERS SQUIBB COMPANY-12374427

PATIENT
  Sex: Male

DRUGS (3)
  1. GLUCOPHAGE [Suspect]
     Indication: DIABETES MELLITUS
     Route: 048
  2. ASPIRIN [Concomitant]
  3. GLYBURIDE [Concomitant]

REACTIONS (2)
  - HALLUCINATION, AUDITORY [None]
  - NIGHTMARE [None]
